FAERS Safety Report 4617024-1 (Version None)
Quarter: 2005Q1

REPORT INFORMATION
  Report Type: 
  Country: None (occurrence: None)
  Receive Date: 20050321
  Receipt Date: 20050311
  Transmission Date: 20050727
  Serious: Yes (Hospitalization)
  Sender: FDA-Public Use
  Company Number: HQWYE106614MAR05

PATIENT
  Age: 43 Year
  Sex: Female

DRUGS (4)
  1. RAPAMUNE [Suspect]
     Indication: PROPHYLAXIS AGAINST TRANSPLANT REJECTION
     Dosage: ORAL
     Route: 048
     Dates: end: 20050308
  2. MYCOPHENOLATE MOFETIL                      (MYCOPHENOLATE MOFETIL,) [Suspect]
     Indication: PROPHYLAXIS AGAINST TRANSPLANT REJECTION
     Dates: end: 20050308
  3. CORTICOSTEROIDS                        (CORTICOSTEROIDS) [Concomitant]
  4. ZENAPAX [Concomitant]

REACTIONS (3)
  - BLOOD CREATINE INCREASED [None]
  - BLOOD UREA INCREASED [None]
  - KIDNEY TRANSPLANT REJECTION [None]
